FAERS Safety Report 6764279-3 (Version None)
Quarter: 2010Q2

REPORT INFORMATION
  Report Type: 
  Country: None (occurrence: None)
  Receive Date: 20100610
  Receipt Date: 20100608
  Transmission Date: 20101027
  Serious: Yes (Other)
  Sender: FDA-Public Use
  Company Number: US-JNJCH-2010009887

PATIENT
  Sex: Female

DRUGS (1)
  1. CORN HUSKERS [Suspect]
     Indication: DRUG USE FOR UNKNOWN INDICATION
     Dosage: TEXT:UNSPECIFIED
     Route: 061

REACTIONS (2)
  - BREAST CANCER [None]
  - PRODUCT QUALITY ISSUE [None]
